FAERS Safety Report 9981225 (Version 1)
Quarter: 2014Q1

REPORT INFORMATION
  Report Type: Spontaneous
  Country: SE (occurrence: None)
  Receive Date: 20140305
  Receipt Date: 20140305
  Transmission Date: 20141002
  Serious: Yes (Hospitalization)
  Sender: FDA-Public Use
  Company Number: SE-ALKEM-000502

PATIENT
  Age: 56 Year
  Sex: Male

DRUGS (3)
  1. METFORMIN (METFORMIN) [Suspect]
     Indication: TYPE 2 DIABETES MELLITUS
  2. ALLOPURINOL [Suspect]
     Indication: GOUT
  3. WARFARIN [Concomitant]

REACTIONS (12)
  - Lactic acidosis [None]
  - Toxicity to various agents [None]
  - Metabolic acidosis [None]
  - Abdominal pain [None]
  - Wheezing [None]
  - Blood pressure increased [None]
  - Respiratory distress [None]
  - Cardiovascular disorder [None]
  - Depressed level of consciousness [None]
  - Sepsis [None]
  - Hypotension [None]
  - Renal failure [None]
